FAERS Safety Report 4637990-8 (Version None)
Quarter: 2005Q2

REPORT INFORMATION
  Report Type: 
  Country: None (occurrence: None)
  Receive Date: 20050415
  Receipt Date: 20050407
  Transmission Date: 20051028
  Serious: Yes (Hospitalization)
  Sender: FDA-Public Use
  Company Number: GBWYE408708FEB05

PATIENT
  Age: 36 Year
  Sex: Female

DRUGS (4)
  1. EFEXOR XL [Suspect]
     Indication: BULIMIA NERVOSA
     Dosage: 225MG DAILY (150MG AM AND 75MG PM)
     Route: 048
     Dates: start: 20010101
  2. EFEXOR XL [Suspect]
     Indication: DEPRESSION
     Dosage: 225MG DAILY (150MG AM AND 75MG PM)
     Route: 048
     Dates: start: 20010101
  3. DIAZEPAM [Concomitant]
  4. BECLOMETHASONE DIPROPIONATE [Concomitant]

REACTIONS (6)
  - APHASIA [None]
  - BRAIN OEDEMA [None]
  - CEREBRAL HAEMORRHAGE [None]
  - COORDINATION ABNORMAL [None]
  - DYSARTHRIA [None]
  - VASCULITIS CEREBRAL [None]
